FAERS Safety Report 6083195-6 (Version None)
Quarter: 2009Q1

REPORT INFORMATION
  Report Type: 
  Country: None (occurrence: None)
  Receive Date: 20090219
  Receipt Date: 20090212
  Transmission Date: 20090719
  Serious: No
  Sender: FDA-Public Use
  Company Number: US-JNJFOC-20090203746

PATIENT
  Sex: Female
  Weight: 46.72 kg

DRUGS (18)
  1. DURAGESIC-100 [Suspect]
     Indication: BONE NEOPLASM MALIGNANT
     Route: 062
  2. METFORMIN HCL [Concomitant]
     Indication: DIABETES MELLITUS
     Route: 048
  3. TRIAMTERENE [Concomitant]
     Indication: HYPERTENSION
     Route: 048
  4. ZEBETA [Concomitant]
     Indication: MITRAL VALVE PROLAPSE
     Route: 048
  5. PROZAC [Concomitant]
     Indication: NERVOUSNESS
     Route: 048
  6. PROZAC [Concomitant]
     Indication: ANXIETY
     Route: 048
  7. VICODIN ES [Concomitant]
     Indication: BREAKTHROUGH PAIN
     Dosage: 6 HOURS AS NECESSARY
     Route: 048
  8. XANAX [Concomitant]
     Indication: SLEEP DISORDER THERAPY
     Route: 048
  9. PHENARGAN [Concomitant]
     Indication: VOMITING
     Route: 048
  10. PHENARGAN [Concomitant]
     Indication: NAUSEA
     Dosage: 2 THREE TIMES PER DAY
     Route: 048
  11. AMBIEN CR [Concomitant]
     Indication: SLEEP DISORDER THERAPY
     Route: 048
  12. VITAMIN B-12 [Concomitant]
     Dosage: 1CC
     Route: 065
  13. LASIX [Concomitant]
     Indication: OEDEMA
     Route: 048
  14. LASIX [Concomitant]
     Indication: HYPERTENSION
     Dosage: AS NEEDED
     Route: 048
  15. POTASSIM [Concomitant]
     Route: 065
  16. REQUIP [Concomitant]
     Indication: RESTLESS LEGS SYNDROME
     Route: 048
  17. HYDROXYZINE [Concomitant]
     Route: 048
  18. LOMOTIL [Concomitant]
     Indication: DIARRHOEA
     Route: 048

REACTIONS (7)
  - APPLICATION SITE BURN [None]
  - APPLICATION SITE VESICLES [None]
  - CATARACT OPERATION [None]
  - INCORRECT DRUG ADMINISTRATION DURATION [None]
  - SURGERY [None]
  - WEIGHT INCREASED [None]
  - WRONG TECHNIQUE IN DRUG USAGE PROCESS [None]
